FAERS Safety Report 12925168 (Version 6)
Quarter: 2017Q2

REPORT INFORMATION
  Report Type: Spontaneous
  Country: JP (occurrence: JP)
  Receive Date: 20161109
  Receipt Date: 20170609
  Transmission Date: 20170830
  Serious: Yes (Death, Life-Threatening, Hospitalization, Other)
  Sender: FDA-Public Use
  Company Number: JP-SA-2016SA201778

PATIENT
  Age: 72 Year
  Sex: Male
  Weight: 51.9 kg

DRUGS (12)
  1. G-LASTA [Suspect]
     Active Substance: PEGFILGRASTIM
     Indication: PROPHYLAXIS
     Route: 058
     Dates: start: 20161025, end: 20161025
  2. MANNITOL. [Concomitant]
     Active Substance: MANNITOL
     Route: 042
  3. PRIMPERAN [Concomitant]
     Active Substance: METOCLOPRAMIDE HYDROCHLORIDE
     Route: 065
  4. POLARAMINE [Concomitant]
     Active Substance: DEXCHLORPHENIRAMINE MALEATE
     Route: 042
  5. LACTEC D [Concomitant]
     Route: 065
  6. RASURITEK [Concomitant]
     Active Substance: RASBURICASE
     Route: 065
  7. JEVTANA [Suspect]
     Active Substance: CABAZITAXEL
     Indication: HORMONE-REFRACTORY PROSTATE CANCER
     Route: 041
     Dates: start: 20161024, end: 20161024
  8. FUROSEMIDE. [Concomitant]
     Active Substance: FUROSEMIDE
     Route: 042
  9. DECADRON [Concomitant]
     Active Substance: DEXAMETHASONE
     Route: 042
  10. FAMOTIDINE. [Concomitant]
     Active Substance: FAMOTIDINE
     Route: 042
  11. GLUCOSE [Concomitant]
     Active Substance: DEXTROSE
     Route: 042
  12. ATARAX-P [Concomitant]
     Active Substance: HYDROXYZINE HYDROCHLORIDE
     Route: 065

REACTIONS (10)
  - Tumour lysis syndrome [Fatal]
  - Acute kidney injury [Fatal]
  - Blood potassium increased [Fatal]
  - Hyperphosphataemia [Fatal]
  - Conjunctivitis [Unknown]
  - Hyperuricaemia [Fatal]
  - Platelet count decreased [Not Recovered/Not Resolved]
  - Hypocalcaemia [Fatal]
  - Neutropenia [Recovered/Resolved]
  - Subcutaneous haematoma [Unknown]

NARRATIVE: CASE EVENT DATE: 20161101
